FAERS Safety Report 12839274 (Version 1)
Quarter: 2016Q4

REPORT INFORMATION
  Report Type: Spontaneous
  Country: US (occurrence: US)
  Receive Date: 20161012
  Receipt Date: 20161012
  Transmission Date: 20170207
  Serious: No
  Sender: FDA-Public Use
  Company Number: US-PFIZER INC-2016471947

PATIENT
  Sex: Female

DRUGS (1)
  1. XELJANZ [Suspect]
     Active Substance: TOFACITINIB CITRATE
     Dosage: 5 MG, UNK

REACTIONS (11)
  - Insomnia [Unknown]
  - Joint stiffness [Unknown]
  - Pain [Unknown]
  - Condition aggravated [Unknown]
  - Hyperhidrosis [Unknown]
  - Peripheral swelling [Unknown]
  - Dyspepsia [Unknown]
  - Fatigue [Unknown]
  - Hypoaesthesia [Unknown]
  - Chest pain [Unknown]
  - Plantar fasciitis [Unknown]
